FAERS Safety Report 12101686 (Version 10)
Quarter: 2017Q2

REPORT INFORMATION
  Report Type: Report from Study
  Country: US (occurrence: US)
  Receive Date: 20160222
  Receipt Date: 20170623
  Transmission Date: 20170829
  Serious: Yes (Death, Hospitalization, Other)
  Sender: FDA-Public Use
  Company Number: US-B.I. PHARMACEUTICALS,INC./RIDGEFIELD-2016-BI-09871BP

PATIENT
  Sex: Male
  Weight: 53.52 kg

DRUGS (2)
  1. OFEV [Suspect]
     Active Substance: NINTEDANIB
     Route: 048
  2. OFEV [Suspect]
     Active Substance: NINTEDANIB
     Indication: IDIOPATHIC PULMONARY FIBROSIS
     Route: 048
     Dates: start: 20160118

REACTIONS (13)
  - Chronic obstructive pulmonary disease [Unknown]
  - Nephrotic syndrome [Recovered/Resolved]
  - Chronic obstructive pulmonary disease [Fatal]
  - Pneumonia [Unknown]
  - Lung disorder [Unknown]
  - Headache [Unknown]
  - Asthenia [Unknown]
  - Chronic respiratory failure [Fatal]
  - Diarrhoea [Unknown]
  - Back pain [Unknown]
  - Cough [Unknown]
  - Dyspnoea [Unknown]
  - Thermal burn [Unknown]
